FAERS Safety Report 10687476 (Version 1)
Quarter: 2014Q4

REPORT INFORMATION
  Report Type: Spontaneous
  Country: US (occurrence: None)
  Receive Date: 20141231
  Receipt Date: 20141231
  Transmission Date: 20150529
  Serious: Yes (Life-Threatening, Hospitalization)
  Sender: FDA-Public Use
  Company Number: None

PATIENT
  Age: 59 Year
  Sex: Male
  Weight: 66 kg

DRUGS (2)
  1. ARAVA [Suspect]
     Active Substance: LEFLUNOMIDE
  2. REMICADE [Suspect]
     Active Substance: INFLIXIMAB

REACTIONS (10)
  - Decreased appetite [None]
  - Urinary tract infection [None]
  - Diarrhoea [None]
  - Pain in extremity [None]
  - Catheter site cellulitis [None]
  - Bacteraemia [None]
  - Staphylococcal sepsis [None]
  - Immunodeficiency [None]
  - Nausea [None]
  - Endocarditis [None]

NARRATIVE: CASE EVENT DATE: 20141218
